FAERS Safety Report 5287193-1 (Version None)
Quarter: 2007Q2

REPORT INFORMATION
  Report Type: 
  Country: None (occurrence: None)
  Receive Date: 20070404
  Receipt Date: 20061221
  Transmission Date: 20071010
  Serious: Yes (Death)
  Sender: FDA-Public Use
  Company Number: US-PFIZER INC-2007020706

PATIENT

DRUGS (1)
  1. ZOLOFT [Suspect]

REACTIONS (1)
  - OVERDOSE [None]
